FAERS Safety Report 12883518 (Version 2)
Quarter: 2016Q4

REPORT INFORMATION
  Report Type: Report from Study
  Country: US (occurrence: US)
  Receive Date: 20161025
  Receipt Date: 20161129
  Transmission Date: 20170207
  Serious: Yes (Hospitalization)
  Sender: FDA-Public Use
  Company Number: US-TAKEDA-2016TUS019016

PATIENT
  Age: 43 Year
  Sex: Male
  Weight: 109.7 kg

DRUGS (7)
  1. HYDROCHLOROTHIAZIDE. [Concomitant]
     Active Substance: HYDROCHLOROTHIAZIDE
     Dosage: 25 MG, QD
     Route: 048
     Dates: start: 20160406
  2. AZATHIOPRINE. [Concomitant]
     Active Substance: AZATHIOPRINE
     Indication: COLITIS ULCERATIVE
     Dosage: 150 MG, UNK
     Route: 048
     Dates: start: 2013
  3. LISINOPRIL. [Concomitant]
     Active Substance: LISINOPRIL
     Dosage: 40 MG, QD
     Route: 048
     Dates: start: 20150810
  4. LIALDA [Concomitant]
     Active Substance: MESALAMINE
     Indication: COLITIS ULCERATIVE
     Dosage: 1.2 G, UNK
     Route: 048
     Dates: start: 2013
  5. VEDOLIZUMAB [Suspect]
     Active Substance: VEDOLIZUMAB
     Indication: COLITIS ULCERATIVE
     Dosage: 300 MG, UNK
     Route: 042
     Dates: start: 20160406
  6. LISINOPRIL. [Concomitant]
     Active Substance: LISINOPRIL
     Dosage: 40 MG, QD
     Route: 048
     Dates: start: 2011
  7. HYDROCHLOROTHIAZIDE. [Concomitant]
     Active Substance: HYDROCHLOROTHIAZIDE
     Dosage: 12.5 MG, UNK
     Route: 048
     Dates: start: 2011

REACTIONS (8)
  - Radius fracture [Not Recovered/Not Resolved]
  - Abdominal pain [Unknown]
  - Appetite disorder [Unknown]
  - Haematochezia [Unknown]
  - Joint dislocation [Not Recovered/Not Resolved]
  - Flatulence [Unknown]
  - Localised infection [Unknown]
  - Faeces soft [Unknown]

NARRATIVE: CASE EVENT DATE: 20160914
